FAERS Safety Report 15439811 (Version 1)
Quarter: 2018Q3

REPORT INFORMATION
  Report Type: Spontaneous
  Country: JP (occurrence: JP)
  Receive Date: 20180928
  Receipt Date: 20180928
  Transmission Date: 20181010
  Serious: Yes (Hospitalization, Other)
  Sender: FDA-Public Use
  Company Number: JP-BAYER-2018-175549

PATIENT
  Sex: Male

DRUGS (1)
  1. STIVARGA [Suspect]
     Active Substance: REGORAFENIB
     Indication: HEPATOCELLULAR CARCINOMA
     Dosage: DAILY DOSE 160 MG 3 WEEKLY CONTINUOUS ADMINISTRATION 1 WEEK BREAK
     Route: 048
     Dates: start: 20170904, end: 20171010

REACTIONS (6)
  - Malaise [Recovering/Resolving]
  - Decreased appetite [Recovering/Resolving]
  - Hepatic encephalopathy [Recovering/Resolving]
  - Palmar-plantar erythrodysaesthesia syndrome [Recovering/Resolving]
  - Diarrhoea [Recovering/Resolving]
  - Blood bilirubin increased [Recovering/Resolving]

NARRATIVE: CASE EVENT DATE: 20170918
